FAERS Safety Report 6331626-6 (Version None)
Quarter: 2009Q3

REPORT INFORMATION
  Report Type: 
  Country: None (occurrence: None)
  Receive Date: 20090827
  Receipt Date: 20090819
  Transmission Date: 20100115
  Serious: Yes (Other)
  Sender: FDA-Public Use
  Company Number: PHEH2009US09576

PATIENT
  Sex: Male

DRUGS (2)
  1. EXFORGE [Suspect]
  2. LIPITOR [Concomitant]

REACTIONS (1)
  - NEPHRECTOMY [None]
